FAERS Safety Report 4628927-6 (Version None)
Quarter: 2005Q1

REPORT INFORMATION
  Report Type: 
  Country: None (occurrence: None)
  Receive Date: 20050107
  Receipt Date: 20040924
  Transmission Date: 20050727
  Serious: No
  Sender: FDA-Public Use
  Company Number: 232754K04USA

PATIENT
  Age: 40 Year
  Sex: Male

DRUGS (2)
  1. REBIF [Suspect]
     Indication: MULTIPLE SCLEROSIS
     Dosage: SUBCUTANEOUS;  22MCG
     Route: 058
     Dates: start: 20021220
  2. REBIF [Suspect]
     Indication: MULTIPLE SCLEROSIS
     Dosage: SUBCUTANEOUS;  22MCG
     Route: 058
     Dates: start: 20040101

REACTIONS (3)
  - ASTHENIA [None]
  - FATIGUE [None]
  - THIRST [None]
